FAERS Safety Report 4418710-9 (Version None)
Quarter: 2004Q3

REPORT INFORMATION
  Report Type: 
  Country: None (occurrence: None)
  Receive Date: 20040806
  Receipt Date: 20040803
  Transmission Date: 20050211
  Serious: Yes (Hospitalization)
  Sender: FDA-Public Use
  Company Number: 2004UW15932

PATIENT
  Age: 64 Year
  Sex: Male

DRUGS (4)
  1. CRESTOR [Suspect]
     Dosage: 10 MG PO
     Route: 049
  2. LIPITOR [Concomitant]
  3. ATENOLOL [Concomitant]
  4. BLOOD PRESSURE MEDICATION [Concomitant]

REACTIONS (14)
  - ASTHENIA [None]
  - COUGH [None]
  - DYSPEPSIA [None]
  - DYSPNOEA [None]
  - INFLUENZA [None]
  - LIVER FUNCTION TEST ABNORMAL [None]
  - OCCUPATIONAL EXPOSURE TO DUST [None]
  - PHARYNGITIS [None]
  - PROSTATIC SPECIFIC ANTIGEN INCREASED [None]
  - RHABDOMYOLYSIS [None]
  - RHINITIS [None]
  - SINUSITIS [None]
  - URINARY TRACT INFECTION [None]
  - WEIGHT DECREASED [None]
